FAERS Safety Report 5679254-X (Version None)
Quarter: 2008Q1

REPORT INFORMATION
  Report Type: 
  Country: None (occurrence: None)
  Receive Date: 20080321
  Receipt Date: 20080306
  Transmission Date: 20080703
  Serious: Yes (Hospitalization)
  Sender: FDA-Public Use
  Company Number: RB-0360-2008

PATIENT
  Age: 48 Year
  Sex: Male

DRUGS (1)
  1. SUBOXONE [Suspect]
     Indication: DRUG DEPENDENCE
     Dosage: 20 MG QD SUBLINGUAL SUBLINGUAL TABLET
     Route: 060
     Dates: start: 20070425, end: 20071211

REACTIONS (1)
  - MENINGITIS [None]
